FAERS Safety Report 18635783 (Version 1)
Quarter: 2020Q4

REPORT INFORMATION
  Report Type: Spontaneous
  Country: CN (occurrence: CN)
  Receive Date: 20201218
  Receipt Date: 20201218
  Transmission Date: 20210114
  Serious: Yes (Death, Life-Threatening, Hospitalization, Other)
  Sender: FDA-Public Use
  Company Number: CN-QUAGEN-2020QUALIT00086

PATIENT
  Age: 51 Year
  Sex: Female

DRUGS (10)
  1. PROPYLTHIOURACIL. [Suspect]
     Active Substance: PROPYLTHIOURACIL
     Indication: THYROTOXIC CRISIS
     Route: 065
  2. PROPYLTHIOURACIL. [Suspect]
     Active Substance: PROPYLTHIOURACIL
     Route: 065
  3. PROPRANOLOL [Suspect]
     Active Substance: PROPRANOLOL HYDROCHLORIDE
     Indication: THYROTOXIC CRISIS
     Route: 065
  4. ESMOLOL [Suspect]
     Active Substance: ESMOLOL HYDROCHLORIDE
     Indication: THYROTOXIC CRISIS
     Dosage: 0.05-0.1MICROG/KG/MIN
     Route: 065
  5. HYDROCORTISONE. [Suspect]
     Active Substance: HYDROCORTISONE
     Indication: THYROTOXIC CRISIS
     Route: 065
  6. HYDROCORTISONE. [Suspect]
     Active Substance: HYDROCORTISONE
     Route: 065
  7. PROPYLTHIOURACIL. [Suspect]
     Active Substance: PROPYLTHIOURACIL
     Route: 065
  8. HYDROCORTISONE. [Suspect]
     Active Substance: HYDROCORTISONE
     Route: 065
  9. HYDROCORTISONE. [Suspect]
     Active Substance: HYDROCORTISONE
     Route: 065
  10. AMIODARONE [Interacting]
     Active Substance: AMIODARONE
     Route: 042

REACTIONS (7)
  - Pneumonia [Fatal]
  - Ventricular fibrillation [Fatal]
  - Circulatory collapse [Fatal]
  - Rebound effect [Fatal]
  - Cardiac arrest [Fatal]
  - Atrial fibrillation [Fatal]
  - Condition aggravated [Fatal]
